FAERS Safety Report 9431256 (Version 1)
Quarter: 2013Q3

REPORT INFORMATION
  Report Type: Spontaneous
  Country: US (occurrence: US)
  Receive Date: 20130730
  Receipt Date: 20130730
  Transmission Date: 20140515
  Serious: No
  Sender: FDA-Public Use
  Company Number: US-009507513-1307USA009026

PATIENT
  Age: 6 Year
  Sex: Female
  Weight: 36.28 kg

DRUGS (2)
  1. DULERA [Suspect]
     Indication: ASTHMA
     Dosage: UNK
     Route: 055
     Dates: start: 2011
  2. SINGULAIR [Concomitant]
     Route: 048

REACTIONS (1)
  - Dry skin [Unknown]
